FAERS Safety Report 8800419 (Version 1)
Quarter: 2012Q4

REPORT INFORMATION
  Report Type: 
  Country: JP (occurrence: JP)
  Receive Date: 20120921
  Receipt Date: 20120921
  Transmission Date: 20130627
  Serious: Yes (Other)
  Sender: FDA-Public Use
  Company Number: JP-MERCK-1209JPN003148

PATIENT
  Age: 74 Year
  Sex: Male

DRUGS (3)
  1. AMITRIPTYLINE HYDROCHLORIDE [Suspect]
     Indication: POST HERPETIC NEURALGIA
     Dosage: 25 mg, tid
     Route: 048
     Dates: start: 20120829, end: 20120831
  2. LANSAP [Concomitant]
     Dosage: 2 DF, UNK
     Route: 048
     Dates: start: 20120829, end: 20120904
  3. BIOFERMIN R [Concomitant]
     Dosage: UNK
     Route: 048
     Dates: start: 20120829, end: 20120904

REACTIONS (1)
  - Serotonin syndrome [Recovered/Resolved]
